FAERS Safety Report 14593120 (Version 1)
Quarter: 2018Q1

REPORT INFORMATION
  Report Type: Spontaneous
  Country: CN (occurrence: CN)
  Receive Date: 20180302
  Receipt Date: 20180302
  Transmission Date: 20180509
  Serious: Yes (Other)
  Sender: FDA-Public Use
  Company Number: CN-BRACCO-2018CN01065

PATIENT
  Age: 60 Year
  Sex: Female

DRUGS (2)
  1. DEXAMETHASONE. [Concomitant]
     Active Substance: DEXAMETHASONE
     Dosage: 10 MG, UNK
     Route: 040
     Dates: start: 20180116
  2. IOPAMIRO [Suspect]
     Active Substance: IOPAMIDOL
     Indication: SCAN
     Dosage: 73 ML, SINGLE
     Route: 040
     Dates: start: 20180116, end: 20180116

REACTIONS (2)
  - Dizziness [Recovered/Resolved]
  - Dysstasia [Recovered/Resolved]

NARRATIVE: CASE EVENT DATE: 20180116
